FAERS Safety Report 5825114-0 (Version None)
Quarter: 2008Q3

REPORT INFORMATION
  Report Type: 
  Country: None (occurrence: None)
  Receive Date: 20080729
  Receipt Date: 20080721
  Transmission Date: 20090109
  Serious: Yes (Other)
  Sender: FDA-Public Use
  Company Number: SE-WYE-H05153308

PATIENT
  Age: 49 Year
  Sex: Male
  Weight: 81 kg

DRUGS (3)
  1. GEMTUZUMAB OZOGAMICIN [Suspect]
     Indication: ACUTE MYELOID LEUKAEMIA
     Dosage: 11.8 TOTAL DOSE ADMINISTERED
     Route: 042
     Dates: start: 20080708, end: 20080708
  2. DAUNORUBICIN HCL [Suspect]
     Indication: ACUTE MYELOID LEUKAEMIA
     Dosage: 267 MG TOTAL DOSE ADMINISTERED
     Route: 042
     Dates: start: 20080705, end: 20080707
  3. CYTARABINE [Suspect]
     Indication: ACUTE MYELOID LEUKAEMIA
     Dosage: 1379 MG TOTAL DOSE ADMINISTERED
     Route: 042
     Dates: start: 20080705, end: 20080711

REACTIONS (3)
  - CELLULITIS [None]
  - ENTEROBACTER INFECTION [None]
  - THROMBOPHLEBITIS [None]
